FAERS Safety Report 5650533-5 (Version None)
Quarter: 2008Q1

REPORT INFORMATION
  Report Type: 
  Country: None (occurrence: None)
  Receive Date: 20080305
  Receipt Date: 20080225
  Transmission Date: 20080703
  Serious: Yes (Other)
  Sender: FDA-Public Use
  Company Number: PHEH2006US01246

PATIENT
  Age: 57 Year
  Sex: Female
  Weight: 66.213 kg

DRUGS (9)
  1. AREDIA [Suspect]
     Dosage: UNK,UNK
  2. ZOMETA [Suspect]
     Indication: METASTASES TO BONE
     Dosage: 4 MG, MONTHLY
  3. XELODA [Concomitant]
     Indication: BREAST CANCER METASTATIC
     Dosage: 500 MG, TID
  4. PROZAC [Concomitant]
     Dosage: 20 MG, QD
     Route: 048
  5. ARIMIDEX [Concomitant]
     Indication: METASTASES TO BONE
     Dosage: UNK, QD
     Route: 048
  6. NAPROSYN [Concomitant]
  7. HYDROCODONE BITARTRATE [Concomitant]
     Dosage: 750 MG, PRN
     Route: 048
  8. ALBUTEROL [Concomitant]
     Dosage: UNK, PRN
  9. TAMOXIFEN [Concomitant]
     Indication: BREAST CANCER

REACTIONS (24)
  - BONE DEBRIDEMENT [None]
  - BONE DISORDER [None]
  - BONE EROSION [None]
  - BONE LESION [None]
  - BONE SCAN ABNORMAL [None]
  - DECREASED APPETITE [None]
  - EXCESSIVE GRANULATION TISSUE [None]
  - GINGIVAL BLEEDING [None]
  - GINGIVAL DISORDER [None]
  - HYPERBARIC OXYGEN THERAPY [None]
  - IMPAIRED HEALING [None]
  - INTERVERTEBRAL DISC DEGENERATION [None]
  - MASS EXCISION [None]
  - METASTASES TO BONE [None]
  - NUCLEAR MAGNETIC RESONANCE IMAGING ABNORMAL [None]
  - OSTEOMYELITIS [None]
  - OSTEONECROSIS [None]
  - PAIN IN JAW [None]
  - RESORPTION BONE INCREASED [None]
  - SPINAL DECOMPRESSION [None]
  - SURGERY [None]
  - THROMBOSIS [None]
  - TOOTH EXTRACTION [None]
  - WEIGHT DECREASED [None]
